FAERS Safety Report 4501443-8 (Version None)
Quarter: 2004Q4

REPORT INFORMATION
  Report Type: 
  Country: None (occurrence: None)
  Receive Date: 20041110
  Receipt Date: 20041029
  Transmission Date: 20050328
  Serious: Yes (Death)
  Sender: FDA-Public Use
  Company Number: USA-2004-0017484

PATIENT
  Age: 57 Year
  Sex: Female

DRUGS (1)
  1. OXYCONTIN [Suspect]
     Indication: PAIN
     Dosage: 80 MG

REACTIONS (3)
  - CONGESTIVE CARDIOMYOPATHY [None]
  - DRUG TOXICITY [None]
  - SOMNOLENCE [None]
